FAERS Safety Report 8131602-7 (Version None)
Quarter: 2012Q1

REPORT INFORMATION
  Report Type: 
  Country: None (occurrence: None)
  Receive Date: 20120208
  Receipt Date: 20120126
  Transmission Date: 20120608
  Serious: Yes (Hospitalization, Other)
  Sender: FDA-Public Use
  Company Number: 2012MA001258

PATIENT
  Sex: Male
  Weight: 104.3273 kg

DRUGS (19)
  1. ASPIRIN [Concomitant]
  2. RISPERDAL [Concomitant]
  3. GEMFIBROZIL [Concomitant]
  4. MAGNESIUM OXIDE [Concomitant]
  5. M.V.I. [Concomitant]
  6. LEXAPRO [Concomitant]
  7. AMIODARONE HCL [Concomitant]
  8. SELENIUM [Concomitant]
  9. SPIRONOLACTONE [Concomitant]
  10. COREG [Concomitant]
  11. NIASPAN [Concomitant]
  12. DIOVAN [Concomitant]
  13. PROPYLTHIOURACIL [Concomitant]
  14. ROCEPHIN [Concomitant]
  15. DIGOXIN [Suspect]
     Indication: PRODUCT USED FOR UNKNOWN INDICATION
     Dosage: 0.25 MG;QD;PO
     Route: 048
     Dates: start: 20001103, end: 20090801
  16. AMBIEN [Concomitant]
  17. LEVAQUIN [Concomitant]
  18. SODIUM CHLORIDE [Concomitant]
  19. APAP TAB [Concomitant]

REACTIONS (31)
  - DIZZINESS [None]
  - SKIN WARM [None]
  - ELECTROCARDIOGRAM QT PROLONGED [None]
  - ENDOCRINE DISORDER [None]
  - BLOOD UREA INCREASED [None]
  - URINE LEUKOCYTE ESTERASE POSITIVE [None]
  - BACTERIAL TEST POSITIVE [None]
  - CARDIAC FAILURE CONGESTIVE [None]
  - BODY TEMPERATURE INCREASED [None]
  - HAEMOGLOBIN DECREASED [None]
  - HAEMATOCRIT DECREASED [None]
  - NEUTROPHIL PERCENTAGE INCREASED [None]
  - BLOOD URINE PRESENT [None]
  - ATRIOVENTRICULAR BLOCK [None]
  - WEIGHT DECREASED [None]
  - ELECTROCARDIOGRAM T WAVE INVERSION [None]
  - DIARRHOEA [None]
  - VENTRICULAR TACHYCARDIA [None]
  - HYPERLIPIDAEMIA [None]
  - BLOOD PRESSURE SYSTOLIC INCREASED [None]
  - WHITE BLOOD CELL COUNT INCREASED [None]
  - BLOOD GLUCOSE INCREASED [None]
  - TREMOR [None]
  - RENAL COLIC [None]
  - HYPERTHYROIDISM [None]
  - NEPHROPATHY [None]
  - BLOOD CREATININE INCREASED [None]
  - PROTEIN URINE PRESENT [None]
  - ELECTROCARDIOGRAM ST SEGMENT DEPRESSION [None]
  - GLOMERULAR FILTRATION RATE DECREASED [None]
  - HEART RATE DECREASED [None]
